FAERS Safety Report 4342618-0 (Version None)
Quarter: 2004Q2

REPORT INFORMATION
  Report Type: 
  Country: None (occurrence: None)
  Receive Date: 20040421
  Receipt Date: 20040108
  Transmission Date: 20050107
  Serious: Yes (Hospitalization)
  Sender: FDA-Public Use
  Company Number: 200411358JP

PATIENT
  Age: 42 Year
  Sex: Female
  Weight: 46 kg

DRUGS (11)
  1. ARAVA [Suspect]
     Indication: RHEUMATOID ARTHRITIS
     Route: 048
     Dates: start: 20031017, end: 20040105
  2. LORAZEPAM [Concomitant]
     Route: 048
  3. RELIFEN [Concomitant]
     Indication: RHEUMATOID ARTHRITIS
     Route: 048
  4. MUCOSTA [Concomitant]
     Indication: PROPHYLAXIS
     Route: 048
  5. AMOBAN [Concomitant]
     Indication: GASTRITIS
     Route: 048
  6. ADOFEED [Concomitant]
     Indication: RHEUMATOID ARTHRITIS
     Route: 003
  7. VOLTAREN [Concomitant]
     Indication: RHEUMATOID ARTHRITIS
     Route: 054
  8. KETOPROFEN [Concomitant]
     Indication: RHEUMATOID ARTHRITIS
     Route: 003
  9. PREDNISOLONE [Concomitant]
     Indication: RHEUMATOID ARTHRITIS
     Route: 048
  10. NERIPROCT [Concomitant]
     Route: 054
  11. FERROMIA [Concomitant]

REACTIONS (5)
  - ANXIETY [None]
  - HEADACHE [None]
  - JOINT DISLOCATION [None]
  - MUSCLE RIGIDITY [None]
  - RESTLESS LEGS SYNDROME [None]
